FAERS Safety Report 7551769-9 (Version None)
Quarter: 2011Q2

REPORT INFORMATION
  Report Type: 
  Country: None (occurrence: None)
  Receive Date: 20110616
  Receipt Date: 20110610
  Transmission Date: 20111010
  Serious: Yes (Other)
  Sender: FDA-Public Use
  Company Number: A0931649A

PATIENT
  Age: 44 Year
  Sex: Male

DRUGS (2)
  1. LAMICTAL [Suspect]
     Dosage: 100MG PER DAY
     Route: 048
  2. GEODON [Suspect]
     Dosage: 80MG AT NIGHT
     Route: 048

REACTIONS (2)
  - POST CONCUSSION SYNDROME [None]
  - BIPOLAR DISORDER [None]
